FAERS Safety Report 14012402 (Version 1)
Quarter: 2017Q3

REPORT INFORMATION
  Report Type: Spontaneous
  Country: FR (occurrence: FR)
  Receive Date: 20170926
  Receipt Date: 20170926
  Transmission Date: 20171128
  Serious: Yes (Hospitalization)
  Sender: FDA-Public Use
  Company Number: FR-PFIZER INC-2017412058

PATIENT
  Age: 89 Year
  Sex: Male

DRUGS (19)
  1. LYRICA [Suspect]
     Active Substance: PREGABALIN
     Dosage: 75 MG, DAILY (25 MG INT HE MORNING, 50 MG IN THE EVENING)
     Route: 048
  2. LASILIX /00032601/ [Concomitant]
     Active Substance: FUROSEMIDE
     Dosage: 120 MG, DAILY (40 MG X2 IN THE MORNING AND 40 MG AT NOON)
  3. XATRAL [Concomitant]
     Active Substance: ALFUZOSIN
     Dosage: 10 MG, 1X/DAY IN THE EVENING
  4. DUROGESIC [Suspect]
     Active Substance: FENTANYL
     Indication: PAIN
     Dosage: 25 UG/24H
     Route: 062
     Dates: end: 20160130
  5. OXYGEN. [Concomitant]
     Active Substance: OXYGEN
     Dosage: 2L/MIN DURING THE NIGHT
  6. DUROGESIC [Suspect]
     Active Substance: FENTANYL
     Dosage: 12 UG/24H
     Route: 062
  7. DEXERYL /00557601/ [Concomitant]
     Active Substance: GLYCERIN\PARAFFIN
     Dosage: UNK
  8. SEROPLEX [Concomitant]
     Active Substance: ESCITALOPRAM OXALATE
     Dosage: 15 MG, 1X/DAY IN THE MORNING
  9. COUMADINE [Concomitant]
     Active Substance: WARFARIN SODIUM
     Dosage: ACCORDING INTERNATIONAL NORMALIZED RATIO
  10. TRANSULOSE [Concomitant]
     Dosage: 1 DF, 1X/DAY IN THE MORNING
  11. XANAX [Concomitant]
     Active Substance: ALPRAZOLAM
     Dosage: 0.25 MG, 1X/DAY IN THE AFTERNOON
  12. LYRICA [Suspect]
     Active Substance: PREGABALIN
     Indication: PAIN
     Dosage: 100 MG, DAILY
     Route: 048
     Dates: end: 20160130
  13. DAFALGAN [Concomitant]
     Active Substance: ACETAMINOPHEN
     Dosage: 500 MG, 3X/DAY
  14. LEVOTHYROX [Concomitant]
     Active Substance: LEVOTHYROXINE
     Dosage: 50 UG, 1X/DAY IN THE MORNING
  15. AMLOR [Concomitant]
     Active Substance: AMLODIPINE BESYLATE
     Dosage: 5 MG, 1X/DAY (IN THE MORNING)
  16. DACRYOSERUM /00951201/ [Concomitant]
     Dosage: UNK
  17. INIPOMP [Concomitant]
     Active Substance: PANTOPRAZOLE SODIUM
     Dosage: 20 MG, 1X/DAY IN THE MORNING
  18. TRANSIPEG /00754501/ [Concomitant]
     Active Substance: POLYETHYLENE GLYCOL 3350
     Dosage: 1 DF, 2X/DAY (1 DF IN THE MORNING AND AT NOON)
  19. UVEDOSE [Concomitant]
     Active Substance: CHOLECALCIFEROL
     Dosage: UNK

REACTIONS (2)
  - Somnolence [Recovered/Resolved]
  - Psychomotor skills impaired [Recovered/Resolved]

NARRATIVE: CASE EVENT DATE: 20160130
